FAERS Safety Report 8025958-3 (Version None)
Quarter: 2012Q1

REPORT INFORMATION
  Report Type: 
  Country: None (occurrence: None)
  Receive Date: 20120105
  Receipt Date: 20111012
  Transmission Date: 20120608
  Serious: Yes (Other)
  Sender: FDA-Public Use
  Company Number: US-ABBOTT-11P-163-0857310-00

PATIENT
  Sex: Female
  Weight: 67.646 kg

DRUGS (3)
  1. LEVOTHYROXINE SODIUM [Suspect]
     Indication: THYROID DISORDER
     Dosage: DAILY DOSE: 20MG
  2. CALCIUM ACETATE [Concomitant]
     Indication: MINERAL SUPPLEMENTATION
     Dosage: DAILY DOSE 1000MG
  3. VITAMIN D [Concomitant]
     Indication: VITAMIN SUPPLEMENTATION
     Dosage: DAILY DOSE: 400 IU

REACTIONS (1)
  - RASH GENERALISED [None]
